FAERS Safety Report 8490403-0 (Version None)
Quarter: 2012Q3

REPORT INFORMATION
  Report Type: 
  Country: None (occurrence: None)
  Receive Date: 20120705
  Receipt Date: 20120622
  Transmission Date: 20120928
  Serious: Yes (Other)
  Sender: FDA-Public Use
  Company Number: JP-ROCHE-1084039

PATIENT
  Sex: Female

DRUGS (3)
  1. EDARAVONE [Suspect]
     Indication: EMBOLIC STROKE
     Route: 042
     Dates: end: 20110820
  2. ACTIVASE [Suspect]
     Indication: EMBOLIC STROKE
     Route: 042
     Dates: start: 20110819, end: 20110819
  3. HEPARIN SODIUM [Concomitant]
     Route: 041
     Dates: start: 20110820, end: 20110831

REACTIONS (1)
  - RENAL DISORDER [None]
